FAERS Safety Report 23870382 (Version 1)
Quarter: 2024Q2

REPORT INFORMATION
  Report Type: Spontaneous
  Country: US (occurrence: US)
  Receive Date: 20240517
  Receipt Date: 20240517
  Transmission Date: 20240716
  Serious: No
  Sender: FDA-Public Use
  Company Number: US-SA-SAC20240513000125

PATIENT
  Age: 70 Year
  Sex: Female
  Weight: 63.049 kg

DRUGS (14)
  1. KEVZARA [Suspect]
     Active Substance: SARILUMAB
     Indication: Lipid metabolism disorder
     Dosage: 200 MG, QOW
     Route: 058
     Dates: start: 2019
  2. KEVZARA [Suspect]
     Active Substance: SARILUMAB
     Indication: Arthropathy
  3. KEVZARA [Suspect]
     Active Substance: SARILUMAB
     Indication: Hyperlipidaemia
  4. KEVZARA [Suspect]
     Active Substance: SARILUMAB
     Indication: Essential hypertension
  5. KEVZARA [Suspect]
     Active Substance: SARILUMAB
     Indication: Localised oedema
  6. KEVZARA [Suspect]
     Active Substance: SARILUMAB
     Indication: Rheumatoid arthritis
  7. FLAXSEED [Concomitant]
     Active Substance: FLAX SEED
     Dosage: UNK
  8. MAXEPA [FISH OIL] [Concomitant]
     Dosage: UNK
  9. IBUPROFEN [Concomitant]
     Active Substance: IBUPROFEN
     Dosage: UNK
  10. VITAMIN E [Concomitant]
     Active Substance: .ALPHA.-TOCOPHEROL
     Dosage: UNK
  11. CALCIUM [Concomitant]
     Active Substance: CALCIUM
     Dosage: UNK
  12. COENZYME Q10 [Concomitant]
     Active Substance: DIETARY SUPPLEMENT\UBIDECARENONE
     Dosage: UNK
  13. VITAMIN D NOS [Concomitant]
     Active Substance: CHOLECALCIFEROL\ERGOCALCIFEROL
     Dosage: UNK
  14. .ALPHA.-TOCOPHEROL [Concomitant]
     Active Substance: .ALPHA.-TOCOPHEROL
     Dosage: UNK

REACTIONS (3)
  - Pain [Unknown]
  - Therapeutic product effect decreased [Unknown]
  - Product use in unapproved indication [Unknown]

NARRATIVE: CASE EVENT DATE: 20190101
